FAERS Safety Report 4354500-3 (Version None)
Quarter: 2004Q2

REPORT INFORMATION
  Report Type: 
  Country: None (occurrence: None)
  Receive Date: 20040503
  Receipt Date: 20040405
  Transmission Date: 20050107
  Serious: Yes (Death, Hospitalization)
  Sender: FDA-Public Use
  Company Number: 138751USA

PATIENT
  Age: 53 Year
  Sex: Female

DRUGS (15)
  1. ADRUCIL [Suspect]
     Indication: COLON CANCER
     Dates: start: 20040225
  2. CAMPTOSAR [Suspect]
     Indication: COLON CANCER
     Dates: start: 20040225
  3. LEUCOVORIN CALCIUM [Suspect]
     Indication: COLON CANCER
     Dates: start: 20040225
  4. CELECOXIB/PLACEBO [Suspect]
     Indication: COLON CANCER
     Dates: start: 20040225
  5. COUMADIN [Concomitant]
  6. PROMETHAZINE [Concomitant]
  7. DEXAMETHASONE [Concomitant]
  8. VICODIN [Concomitant]
  9. ZOLPIDEM [Concomitant]
  10. HYOSCYAMINE [Concomitant]
  11. ACTONAL [Concomitant]
  12. ROBEPRAZOLE [Concomitant]
  13. FISH OIL CONCENTRATE [Concomitant]
  14. FLUCONAZOLE [Concomitant]
  15. CALCIUM [Concomitant]

REACTIONS (9)
  - ANAEMIA [None]
  - BLOOD ALBUMIN DECREASED [None]
  - FEELING ABNORMAL [None]
  - HYPOTENSION [None]
  - MULTI-ORGAN FAILURE [None]
  - SEPSIS [None]
  - SYNCOPE [None]
  - TACHYCARDIA [None]
  - VOMITING [None]
